FAERS Safety Report 4350871-2 (Version None)
Quarter: 2004Q2

REPORT INFORMATION
  Report Type: 
  Country: None (occurrence: None)
  Receive Date: 20040428
  Receipt Date: 20040413
  Transmission Date: 20050107
  Serious: Yes (Hospitalization, Other)
  Sender: FDA-Public Use
  Company Number: USA030948081

PATIENT
  Age: 68 Year
  Sex: Female

DRUGS (19)
  1. FORTEO [Suspect]
     Indication: OSTEOPOROSIS
     Dosage: 20 UG/DAY
     Dates: start: 20030401
  2. TRICOR [Concomitant]
  3. COREG [Concomitant]
  4. LIPITOR [Concomitant]
  5. COZAAR [Concomitant]
  6. LASIX [Concomitant]
  7. AMARYL [Concomitant]
  8. STARLIX [Concomitant]
  9. PLAVIX [Concomitant]
  10. FOLIC ACID [Concomitant]
  11. ATROVENT [Concomitant]
  12. VITAMIN CAP [Concomitant]
  13. VITAMIN E [Concomitant]
  14. NITROGLYCERIN [Concomitant]
  15. NITROPATCH (GLYCERYL TRINITRATE) [Concomitant]
  16. ZETIA [Concomitant]
  17. NEXIUM [Concomitant]
  18. OXYCONTIN [Concomitant]
  19. CALCIUM AND VITAMIN D [Concomitant]

REACTIONS (7)
  - ANGINA PECTORIS [None]
  - AORTIC ANEURYSM [None]
  - BACK PAIN [None]
  - CARDIAC FAILURE CONGESTIVE [None]
  - DIARRHOEA [None]
  - INTERVERTEBRAL DISC DEGENERATION [None]
  - THYROIDITIS [None]
